FAERS Safety Report 17681729 (Version 1)
Quarter: 2020Q2

REPORT INFORMATION
  Report Type: Other
  Country: US (occurrence: US)
  Receive Date: 20200417
  Receipt Date: 20200417
  Transmission Date: 20200714
  Serious: No
  Sender: FDA-Public Use
  Company Number: US-AMAG PHARMACEUTICALS, INC.-AMAG202001207

PATIENT
  Age: 24 Year
  Sex: Female
  Weight: 79.9 kg

DRUGS (1)
  1. MAKENA [Suspect]
     Active Substance: HYDROXYPROGESTERONE CAPROATE
     Indication: PREMATURE DELIVERY
     Route: 058
     Dates: end: 20200326

REACTIONS (3)
  - Emotional distress [Unknown]
  - Nausea [Unknown]
  - Fatigue [Unknown]
